FAERS Safety Report 5031442-1 (Version None)
Quarter: 2006Q2

REPORT INFORMATION
  Report Type: 
  Country: None (occurrence: None)
  Receive Date: 20060621
  Receipt Date: 20060412
  Transmission Date: 20061013
  Serious: Yes (Hospitalization)
  Sender: FDA-Public Use
  Company Number: AU-BRISTOL-MYERS SQUIBB COMPANY-13343793

PATIENT
  Age: 67 Year
  Sex: Male

DRUGS (8)
  1. CISPLATIN [Suspect]
     Indication: GASTRIC CANCER
     Route: 041
     Dates: start: 20060323, end: 20060323
  2. TS-1 [Interacting]
     Indication: GASTRIC CANCER
     Route: 048
     Dates: start: 20060323, end: 20060329
  3. ACIMAX [Concomitant]
     Indication: GASTROOESOPHAGEAL REFLUX PROPHYLAXIS
     Dates: start: 20050101
  4. COLOXYL + SENNA [Concomitant]
     Indication: CONSTIPATION
     Dates: start: 20050101
  5. DEXAMETHASONE TAB [Concomitant]
     Dates: start: 20060323
  6. ONDANSETRON HCL [Concomitant]
     Dates: start: 20060323, end: 20060328
  7. EMEND [Concomitant]
     Dates: start: 20060323, end: 20060325
  8. CEPHALEXIN [Concomitant]
     Dates: start: 20060322

REACTIONS (2)
  - ARTERIAL THROMBOSIS [None]
  - DRUG INTERACTION [None]
